FAERS Safety Report 5980076-0 (Version None)
Quarter: 2008Q4

REPORT INFORMATION
  Report Type: 
  Country: None (occurrence: None)
  Receive Date: 20081128
  Receipt Date: 20081114
  Transmission Date: 20090506
  Serious: Yes (Hospitalization)
  Sender: FDA-Public Use
  Company Number: GXKR2008FR10954

PATIENT
  Age: 32 Year
  Sex: Male

DRUGS (2)
  1. CLOZAPINE [Suspect]
     Indication: SCHIZOPHRENIA
     Dosage: 900 MG, QD
     Dates: start: 20010601
  2. FLUVOXAMINE (NGX) (FLUVOXAMINE) [Concomitant]
     Indication: ENZYME ACTIVITY DECREASED
     Dosage: 50 MG, QD
     Dates: start: 20050901

REACTIONS (7)
  - DRUG INEFFECTIVE [None]
  - DRUG INTERACTION [None]
  - DRUG LEVEL DECREASED [None]
  - DRUG LEVEL INCREASED [None]
  - MANIA [None]
  - PSYCHOTIC DISORDER [None]
  - SEDATION [None]
